FAERS Safety Report 6456089-1 (Version None)
Quarter: 2009Q4

REPORT INFORMATION
  Report Type: 
  Country: None (occurrence: None)
  Receive Date: 20091125
  Receipt Date: 20091117
  Transmission Date: 20100525
  Serious: Yes (Other)
  Sender: FDA-Public Use
  Company Number: US-ASTRAZENECA-2007UW15761

PATIENT
  Age: 10446 Day
  Sex: Female
  Weight: 97.5 kg

DRUGS (30)
  1. SEROQUEL [Suspect]
     Indication: INSOMNIA
     Route: 048
     Dates: start: 19980101, end: 20060801
  2. SEROQUEL [Suspect]
     Indication: POST-TRAUMATIC STRESS DISORDER
     Route: 048
     Dates: start: 19980101, end: 20060801
  3. SEROQUEL [Suspect]
     Indication: ANXIETY
     Route: 048
     Dates: start: 19980101, end: 20060801
  4. COMBIVIR [Concomitant]
     Dates: start: 19990120
  5. CRIXIVAN [Concomitant]
     Dates: start: 19990120
  6. PAXIL [Concomitant]
     Dosage: 20 MG, 25 MG TABLET WAS DISPENSED
     Dates: start: 20001009
  7. ZIAC [Concomitant]
     Dates: start: 19990225
  8. MONOPRIL [Concomitant]
     Dates: start: 19990225
  9. METOCLOPRAMIDE [Concomitant]
     Dates: start: 19990316
  10. PHENERGAN [Concomitant]
     Dates: start: 19990409
  11. BUSPAR [Concomitant]
     Dates: start: 20000103
  12. HYDROCODONE BITARTRATE AND ACETAMINOPHEN [Concomitant]
     Dosage: 5 MG/500 MG-7.5 MG/ 750 MG DISPENSED
     Dates: start: 20000222
  13. VICOPROFEN [Concomitant]
     Dates: start: 20000222
  14. DIFLUCAN [Concomitant]
     Dates: start: 19990130
  15. WELLBUTRIN SR [Concomitant]
     Dates: start: 20000523
  16. VIOXX [Concomitant]
     Dates: start: 20000523
  17. RISPERDAL [Concomitant]
     Dates: start: 20001009
  18. DIPHENHYDRAMINE HCL [Concomitant]
     Dates: start: 20020528
  19. AMBIEN [Concomitant]
     Dates: start: 20001009
  20. CLONIDINE [Concomitant]
     Dates: start: 20020124
  21. LORAZEPAM [Concomitant]
     Dates: start: 20020517
  22. TOPROL-XL [Concomitant]
     Dates: start: 20020808
  23. NIFEDIPINE [Concomitant]
     Dates: start: 20020910
  24. LOTREL [Concomitant]
     Dosage: 10-20 MG
     Dates: start: 20021207
  25. ACTOS [Concomitant]
     Dates: start: 20030506
  26. KALETRA [Concomitant]
     Dates: start: 20031107
  27. REYATAZ [Concomitant]
     Dates: start: 20050523
  28. ZERIT [Concomitant]
     Dates: start: 20050523
  29. ZOLOFT [Concomitant]
     Dates: start: 20040526
  30. PROZAC [Concomitant]

REACTIONS (3)
  - MALIGNANT NEOPLASM OF LACRIMAL DUCT [None]
  - PANCREATITIS ACUTE [None]
  - TYPE 2 DIABETES MELLITUS [None]
